FAERS Safety Report 9775585 (Version 2)
Quarter: 2014Q1

REPORT INFORMATION
  Report Type: Spontaneous
  Country: US (occurrence: US)
  Receive Date: 20131220
  Receipt Date: 20140318
  Transmission Date: 20141002
  Serious: No
  Sender: FDA-Public Use
  Company Number: US-GALDERMA-US13003768

PATIENT
  Age: 48 Year
  Sex: Female

DRUGS (13)
  1. MIRVASO (BRIMONIDINE) TOPICAL GEL, 0.33% [Suspect]
     Indication: ROSACEA
     Dosage: 0.33%
     Route: 061
     Dates: start: 20131105, end: 20131129
  2. MIRVASO (BRIMONIDINE) TOPICAL GEL, 0.33% [Suspect]
     Route: 061
     Dates: start: 20131107, end: 20131122
  3. KLARON (SODIUM SULFACETAMIDE) LOTION [Concomitant]
     Indication: ACNE
     Dosage: 10%
     Route: 061
     Dates: start: 2006
  4. KLARON (SODIUM SULFACETAMIDE) LOTION [Concomitant]
     Indication: ROSACEA
  5. ACZONE (DAPSONE) [Concomitant]
     Indication: ACNE
     Dosage: 5%
     Route: 061
     Dates: start: 2010
  6. RETIN A MICRO (TRETINOIN GEL) [Concomitant]
     Indication: ACNE
     Dosage: 0.1%
     Route: 061
     Dates: start: 1998
  7. SPIRONOLACTONE [Concomitant]
     Indication: ACNE
     Dosage: 25 MG
     Route: 048
     Dates: start: 2011
  8. PROTONIX (PANTOPRAZOLE) [Concomitant]
     Indication: GASTROOESOPHAGEAL REFLUX DISEASE
     Dosage: 40 MG
     Route: 048
     Dates: start: 2009
  9. RANITIDINE [Concomitant]
     Indication: GASTROOESOPHAGEAL REFLUX DISEASE
     Dosage: 150 MG
     Route: 048
     Dates: start: 2011
  10. AQUANIL CLEANSER [Concomitant]
     Indication: THERAPEUTIC SKIN CARE TOPICAL
     Route: 061
  11. EUCERIN MOISTURIZER [Concomitant]
     Indication: DRY SKIN PROPHYLAXIS
     Route: 061
     Dates: start: 2007
  12. EUCERIN MOISTURIZER [Concomitant]
     Indication: SKIN WRINKLING
  13. VITAMIN D [Concomitant]
     Indication: ROUTINE HEALTH MAINTENANCE
     Dosage: 1000 MG
     Route: 048
     Dates: start: 2012

REACTIONS (7)
  - Hot flush [Recovered/Resolved]
  - Feeling hot [Recovered/Resolved]
  - Sleep disorder [Recovered/Resolved]
  - Erythema [Recovered/Resolved]
  - Skin burning sensation [Recovered/Resolved]
  - Flushing [Recovered/Resolved]
  - Off label use [Recovered/Resolved]
